FAERS Safety Report 9466914 (Version 1)
Quarter: 2013Q3

REPORT INFORMATION
  Report Type: Spontaneous
  Country: US (occurrence: US)
  Receive Date: 20130820
  Receipt Date: 20130820
  Transmission Date: 20140515
  Serious: Yes (Hospitalization, Other)
  Sender: FDA-Public Use
  Company Number: US-PFIZER INC-2013237209

PATIENT
  Sex: Female

DRUGS (2)
  1. BOSULIF [Suspect]
     Dosage: UNK
     Dates: start: 2013
  2. LOVENOX [Suspect]
     Dosage: UNK
     Dates: start: 201308

REACTIONS (4)
  - Pulmonary thrombosis [Unknown]
  - Feeling abnormal [Unknown]
  - Dysgeusia [Unknown]
  - Fatigue [Unknown]
